FAERS Safety Report 5020922-0 (Version None)
Quarter: 2006Q2

REPORT INFORMATION
  Report Type: 
  Country: None (occurrence: None)
  Receive Date: 20060607
  Receipt Date: 20060607
  Transmission Date: 20061013
  Serious: No
  Sender: FDA-Public Use
  Company Number: None

PATIENT
  Age: 54 Year
  Weight: 94.3482 kg

DRUGS (1)
  1. LEVAQUIN [Suspect]
     Indication: BRONCHITIS
     Dosage: I FORGOT BUT IT IS RECORDED    ONE OR TWO A DAY   PO
     Route: 048
     Dates: start: 20051210, end: 20051216

REACTIONS (12)
  - ASTHENIA [None]
  - CROHN'S DISEASE [None]
  - EMOTIONAL DISORDER [None]
  - FATIGUE [None]
  - GASTROINTESTINAL DISORDER [None]
  - LOSS OF EMPLOYMENT [None]
  - MENTAL DISORDER [None]
  - PAIN [None]
  - POISONING [None]
  - SHOCK [None]
  - SYNCOPE [None]
  - UNEVALUABLE EVENT [None]
